FAERS Safety Report 24085649 (Version 1)
Quarter: 2024Q3

REPORT INFORMATION
  Report Type: Spontaneous
  Country: US (occurrence: None)
  Receive Date: 20240712
  Receipt Date: 20240712
  Transmission Date: 20241016
  Serious: Yes (Hospitalization)
  Sender: Public
  Company Number: None

PATIENT
  Age: 65 Year
  Sex: Female

DRUGS (1)
  1. OTEZLA [Suspect]
     Active Substance: APREMILAST
     Indication: Psoriasis
     Dosage: OTHER QUANTITY : 10/20/30 MG;?OTHER FREQUENCY : QDONDAY1THENBIDDAY2;?

REACTIONS (4)
  - Vomiting [None]
  - Headache [None]
  - Diarrhoea [None]
  - Hypersensitivity [None]
